FAERS Safety Report 4593781-8 (Version None)
Quarter: 2005Q1

REPORT INFORMATION
  Report Type: 
  Country: None (occurrence: None)
  Receive Date: 20050224
  Receipt Date: 20041222
  Transmission Date: 20050727
  Serious: No
  Sender: FDA-Public Use
  Company Number: US-BRISTOL-MYERS SQUIBB COMPANY-12811212

PATIENT
  Age: 25 Year
  Sex: Female
  Weight: 132 kg

DRUGS (2)
  1. EXCEDRIN (MIGRAINE) [Suspect]
     Indication: DYSMENORRHOEA
     Route: 048
     Dates: start: 20041222
  2. ASPIRIN [Concomitant]
     Indication: DYSMENORRHOEA

REACTIONS (3)
  - FEELING JITTERY [None]
  - MEDICATION ERROR [None]
  - NAUSEA [None]
